FAERS Safety Report 8798609 (Version 1)
Quarter: 2012Q4

REPORT INFORMATION
  Report Type: 
  Country: US (occurrence: US)
  Receive Date: 20120917
  Receipt Date: 20120917
  Transmission Date: 20130627
  Serious: Yes (Hospitalization, Other)
  Sender: FDA-Public Use
  Company Number: US-ELI_LILLY_AND_COMPANY-US201209000934

PATIENT
  Sex: Male

DRUGS (15)
  1. BYETTA [Suspect]
     Dosage: 10 ug, unknown
     Route: 058
  2. REMERON [Concomitant]
     Dosage: 45 mg, each evening
  3. GLIPIZIDE [Concomitant]
     Dosage: 5 mg, qd
  4. METFORMIN [Concomitant]
     Dosage: 500 mg, qd
  5. LANTUS [Concomitant]
  6. ADVAIR [Concomitant]
     Dosage: 50 ug, bid
     Route: 055
  7. VITAMIN D [Concomitant]
  8. ACIDOPHILUS [Concomitant]
     Dosage: 100 mg, unknown
  9. PERCOCET [Concomitant]
     Dosage: UNK, prn
  10. PROTONIX [Concomitant]
     Dosage: 40 mg, qd
  11. METHADONE [Concomitant]
     Dosage: 10 mg, bid
  12. DIAZEPAM [Concomitant]
     Dosage: 5 mg, prn
  13. ZOFRAN [Concomitant]
     Dosage: 4 mg, unknown
  14. SPIRIVA HANDIHALER [Concomitant]
     Dosage: 18 ug, qd
     Route: 055
  15. PANCRELIPASE [Concomitant]

REACTIONS (1)
  - Adenocarcinoma pancreas [Unknown]
